FAERS Safety Report 20906670 (Version 1)
Quarter: 2022Q2

REPORT INFORMATION
  Report Type: Spontaneous
  Country: SE (occurrence: SE)
  Receive Date: 20220602
  Receipt Date: 20220602
  Transmission Date: 20220721
  Serious: Yes (Other)
  Sender: FDA-Public Use
  Company Number: SE-ARBOR PHARMACEUTICALS, LLC-SE-2022ARB001318

PATIENT

DRUGS (8)
  1. TRIPTODUR [Suspect]
     Active Substance: TRIPTORELIN
     Indication: Gender dysphoria
     Dosage: STRENGTH 11.25 MG
     Dates: start: 20180629, end: 20210114
  2. TRIPTODUR [Suspect]
     Active Substance: TRIPTORELIN
     Indication: Off label use
  3. TRIPTODUR [Suspect]
     Active Substance: TRIPTORELIN
  4. TRIPTODUR [Suspect]
     Active Substance: TRIPTORELIN
  5. ZOLOFT [Concomitant]
     Active Substance: SERTRALINE HYDROCHLORIDE
     Indication: Depression
     Dosage: 50 MG
     Route: 048
     Dates: start: 20180831, end: 202101
  6. CONCERTA [Concomitant]
     Active Substance: METHYLPHENIDATE HYDROCHLORIDE
     Indication: Attention deficit hyperactivity disorder
     Dosage: 90 MG
     Route: 048
     Dates: start: 20191011, end: 2020
  7. LISDEXAMFETAMINE DIMESYLATE [Concomitant]
     Active Substance: LISDEXAMFETAMINE DIMESYLATE
     Indication: Attention deficit hyperactivity disorder
     Dosage: UNK
     Route: 048
     Dates: start: 2020
  8. MELATONIN [Concomitant]
     Active Substance: MELATONIN
     Indication: Sleep disorder
     Dosage: 5 MG
     Route: 048

REACTIONS (9)
  - Hepatic enzyme increased [Recovered/Resolved]
  - Obesity [Recovering/Resolving]
  - Osteopenia [Unknown]
  - Dermatitis [Unknown]
  - Cognitive disorder [Recovered/Resolved]
  - Asthenia [Unknown]
  - Free fatty acids increased [Unknown]
  - Off label use [Unknown]
  - Drug interaction [Unknown]

NARRATIVE: CASE EVENT DATE: 20180629
